FAERS Safety Report 22236867 (Version 1)
Quarter: 2023Q2

REPORT INFORMATION
  Report Type: Spontaneous
  Country: US (occurrence: US)
  Receive Date: 20230420
  Receipt Date: 20230420
  Transmission Date: 20230721
  Serious: Yes (Other)
  Sender: FDA-Public Use
  Company Number: US-009507513-2304USA007636

PATIENT
  Age: 66 Year
  Sex: Female

DRUGS (2)
  1. KEYTRUDA [Suspect]
     Active Substance: PEMBROLIZUMAB
     Dosage: 200 MILLIGRAMS, EVERY 3 WEEKS
     Route: 042
     Dates: start: 20200714
  2. KEYTRUDA [Suspect]
     Active Substance: PEMBROLIZUMAB
     Dosage: 400 MILLIGRAMS, EVERY 6 WEEKS
     Route: 042
     Dates: start: 20201117

REACTIONS (1)
  - Immune-mediated gastritis [Recovering/Resolving]
